FAERS Safety Report 7111578-1 (Version None)
Quarter: 2010Q4

REPORT INFORMATION
  Report Type: 
  Country: None (occurrence: None)
  Receive Date: 20101118
  Receipt Date: 20101115
  Transmission Date: 20110411
  Serious: Yes (Other)
  Sender: FDA-Public Use
  Company Number: SE-PFIZER INC-2010149140

PATIENT
  Age: 55 Year
  Sex: Female

DRUGS (7)
  1. LYRICA [Suspect]
     Indication: NEURALGIA
     Dosage: 100 MG + 150 MG
  2. EFFORTIL [Concomitant]
     Dosage: UNK
  3. CRESTOR [Concomitant]
     Dosage: UNK
  4. TROMBYL [Concomitant]
     Dosage: UNK
  5. EMCONCOR [Concomitant]
     Dosage: UNK
  6. ESIDRIX [Concomitant]
     Dosage: UNK
  7. VITAMIN B-12 [Concomitant]
     Dosage: UNK

REACTIONS (3)
  - BLOOD GLUCOSE INCREASED [None]
  - BLOOD KETONE BODY INCREASED [None]
  - URINE KETONE BODY PRESENT [None]
